FAERS Safety Report 23629083 (Version 1)
Quarter: 2024Q1

REPORT INFORMATION
  Report Type: Spontaneous
  Country: GB (occurrence: CH)
  Receive Date: 20240313
  Receipt Date: 20240313
  Transmission Date: 20240410
  Serious: Yes (Life-Threatening, Hospitalization, Other)
  Sender: FDA-Public Use
  Company Number: CH-CNX THERAPEUTICS-2024CNX000119

PATIENT

DRUGS (6)
  1. LATUDA [Suspect]
     Active Substance: LURASIDONE HYDROCHLORIDE
     Indication: Product used for unknown indication
     Dosage: 30 (COMBINED DRUG INTOXICATION. EXACT DATE TAKEN UNCLEAR)
     Route: 048
     Dates: start: 20231214, end: 20231214
  2. XANAX [Suspect]
     Active Substance: ALPRAZOLAM
     Indication: Product used for unknown indication
     Dosage: 48 (COMBINED DRUG INTOXICATION. EXACT DATE TAKEN UNCLEAR)
     Route: 048
     Dates: start: 20231214, end: 20231214
  3. PAROXETINE HYDROCHLORIDE [Suspect]
     Active Substance: PAROXETINE HYDROCHLORIDE\PAROXETINE HYDROCHLORIDE ANHYDROUS
     Indication: Product used for unknown indication
     Dosage: 49 (COMBINED DRUG INTOXICATION. EXACT DATE TAKEN UNCLEAR)
     Route: 048
     Dates: start: 20231214, end: 20231214
  4. OLANZAPINE [Suspect]
     Active Substance: OLANZAPINE
     Indication: Product used for unknown indication
     Dosage: 21 (COMBINED DRUG INTOXICATION. EXACT DATE TAKEN UNCLEAR)
     Route: 048
     Dates: start: 20231214, end: 20231214
  5. LEVOTHYROXINE [Concomitant]
     Active Substance: LEVOTHYROXINE\LEVOTHYROXINE SODIUM
     Indication: Hypothyroidism
     Dosage: UNK
     Route: 065
  6. VITAMIN B12 [Concomitant]
     Active Substance: CYANOCOBALAMIN
     Indication: Anaemia
     Dosage: UNK
     Route: 065

REACTIONS (2)
  - Toxicity to various agents [Recovering/Resolving]
  - Overdose [Unknown]

NARRATIVE: CASE EVENT DATE: 20231214
